FAERS Safety Report 18412702 (Version 3)
Quarter: 2021Q1

REPORT INFORMATION
  Report Type: Spontaneous
  Country: US (occurrence: US)
  Receive Date: 20201021
  Receipt Date: 20210219
  Transmission Date: 20210419
  Serious: No
  Sender: FDA-Public Use
  Company Number: US-PFIZER INC-2020014241

PATIENT
  Age: 75 Year
  Sex: Female

DRUGS (2)
  1. CELEBREX [Suspect]
     Active Substance: CELECOXIB
     Indication: ARTHRALGIA
     Dosage: 200 MG, DAILY (TAKE 1 CAPSULE(S) EVERY DAY)
     Route: 048
  2. CELEBREX [Suspect]
     Active Substance: CELECOXIB
     Indication: LUMBAR RADICULOPATHY

REACTIONS (2)
  - Spondylitis [Unknown]
  - Product use in unapproved indication [Unknown]
